FAERS Safety Report 14298499 (Version 1)
Quarter: 2017Q4

REPORT INFORMATION
  Report Type: Spontaneous
  Country: US (occurrence: US)
  Receive Date: 20171215
  Receipt Date: 20171215
  Transmission Date: 20180321
  Serious: Yes (Hospitalization)
  Sender: FDA-Public Use
  Company Number: None

PATIENT
  Age: 95 Year
  Sex: Male
  Weight: 100 kg

DRUGS (1)
  1. WARFARIN [Suspect]
     Active Substance: WARFARIN
     Indication: DEEP VEIN THROMBOSIS
     Route: 048
     Dates: start: 20150105, end: 20170224

REACTIONS (4)
  - Rectal haemorrhage [None]
  - Myelodysplastic syndrome [None]
  - Haemorrhage [None]
  - International normalised ratio decreased [None]

NARRATIVE: CASE EVENT DATE: 20170224
